FAERS Safety Report 16307969 (Version 1)
Quarter: 2019Q2

REPORT INFORMATION
  Report Type: Spontaneous
  Country: US (occurrence: US)
  Receive Date: 20190514
  Receipt Date: 20190514
  Transmission Date: 20190711
  Serious: No
  Sender: FDA-Public Use
  Company Number: US-ELI_LILLY_AND_COMPANY-US201905002635

PATIENT
  Age: 56 Year
  Sex: Female

DRUGS (1)
  1. HUMULIN R [Suspect]
     Active Substance: INSULIN HUMAN
     Indication: DIABETES MELLITUS
     Dosage: 100 U, UNKNOWN
     Route: 058

REACTIONS (5)
  - Confusional state [Unknown]
  - Wrong technique in product usage process [Unknown]
  - Dizziness [Unknown]
  - Asthenia [Unknown]
  - Accidental overdose [Unknown]

NARRATIVE: CASE EVENT DATE: 201903
